FAERS Safety Report 17237350 (Version 1)
Quarter: 2019Q4

REPORT INFORMATION
  Report Type: Spontaneous
  Country: US (occurrence: US)
  Receive Date: 20191211
  Receipt Date: 20191211
  Transmission Date: 20200122
  Serious: Yes (Hospitalization)
  Sender: FDA-Public Use
  Company Number: None

PATIENT
  Age: 5 Year
  Sex: Male
  Weight: 13.5 kg

DRUGS (5)
  1. 5-FLUOROURACIL (5-FU) [Suspect]
     Active Substance: FLUOROURACIL
     Dates: end: 20191121
  2. CISPLATIN. [Suspect]
     Active Substance: CISPLATIN
     Dates: end: 20191121
  3. DOXORUBICIN HYDROCHLORIDE. [Suspect]
     Active Substance: DOXORUBICIN HYDROCHLORIDE
     Dates: start: 20191122
  4. ZINECARD [Suspect]
     Active Substance: DEXRAZOXANE HYDROCHLORIDE
     Dates: end: 20191122
  5. VINCRISTINE SULFATE. [Suspect]
     Active Substance: VINCRISTINE SULFATE
     Dates: end: 20191129

REACTIONS (4)
  - Mouth ulceration [None]
  - Neutropenia [None]
  - Decreased appetite [None]
  - Mucosal inflammation [None]

NARRATIVE: CASE EVENT DATE: 20191203
